FAERS Safety Report 4589230-6 (Version None)
Quarter: 2005Q1

REPORT INFORMATION
  Report Type: 
  Country: None (occurrence: None)
  Receive Date: 20050216
  Receipt Date: 20050216
  Transmission Date: 20050727
  Serious: Yes (Other)
  Sender: FDA-Public Use
  Company Number: None

PATIENT
  Sex: Female
  Weight: 50.0771 kg

DRUGS (1)
  1. NADOLOL [Suspect]
     Indication: HYPERTENSION
     Dosage: 20 MG 1/2 TAB PO QD
     Route: 048
     Dates: start: 20040909, end: 20041011

REACTIONS (2)
  - BLOOD PRESSURE INADEQUATELY CONTROLLED [None]
  - BLOOD PRESSURE INCREASED [None]
